FAERS Safety Report 19515227 (Version 3)
Quarter: 2022Q4

REPORT INFORMATION
  Report Type: Report from Study
  Country: US (occurrence: US)
  Receive Date: 20210710
  Receipt Date: 20221115
  Transmission Date: 20230113
  Serious: Yes (Other)
  Sender: FDA-Public Use
  Company Number: NVSC2021US148014

PATIENT
  Age: 48 Year
  Sex: Male

DRUGS (4)
  1. ENTRESTO [Suspect]
     Active Substance: SACUBITRIL\VALSARTAN
     Indication: Cardiac failure
     Dosage: 1 DOSAGE FORM, BID
     Route: 048
     Dates: start: 2019
  2. ENTRESTO [Suspect]
     Active Substance: SACUBITRIL\VALSARTAN
     Dosage: UNK
     Route: 048
  3. CARVEDILOL [Concomitant]
     Active Substance: CARVEDILOL
     Indication: Product used for unknown indication
     Dosage: UNK
     Route: 065
  4. ATORVASTATIN [Concomitant]
     Active Substance: ATORVASTATIN
     Indication: Product used for unknown indication
     Dosage: UNK
     Route: 065

REACTIONS (10)
  - Thyroid cancer [Unknown]
  - Claustrophobia [Unknown]
  - Dyspnoea [Unknown]
  - Blood pressure increased [Unknown]
  - Orthopnoea [Unknown]
  - Malaise [Unknown]
  - Fall [Unknown]
  - Asthenia [Unknown]
  - Fatigue [Unknown]
  - Dizziness postural [Unknown]

NARRATIVE: CASE EVENT DATE: 20221024
